FAERS Safety Report 8495789-9 (Version None)
Quarter: 2012Q3

REPORT INFORMATION
  Report Type: 
  Country: None (occurrence: None)
  Receive Date: 20120709
  Receipt Date: 20120521
  Transmission Date: 20120928
  Serious: Yes (Other)
  Sender: FDA-Public Use
  Company Number: JP-ROCHE-1084753

PATIENT
  Sex: Female

DRUGS (12)
  1. CYCLOPHOSPHAMIDE [Suspect]
     Indication: BREAST CANCER
     Dosage: FOR METASTATIC PATIENTS
  2. FLUOROURACIL [Suspect]
     Dosage: ADJUVANT THERAPY
  3. PACLITAXEL [Suspect]
  4. VINORELBINE TARTRATE [Suspect]
     Indication: BREAST CANCER
  5. XELODA [Suspect]
     Indication: BREAST CANCER
  6. CYCLOPHOSPHAMIDE [Suspect]
     Dosage: AS ADJUVANT THERAPY
  7. EPIRUBICIN HYDROCHLORIDE [Suspect]
     Indication: BREAST CANCER
     Dosage: ADJUVANT THERAPY
  8. PACLITAXEL [Suspect]
     Indication: BREAST CANCER
  9. FLUOROURACIL [Suspect]
     Indication: BREAST CANCER
     Dosage: ADJUVANT THERAPY
  10. DOCETAXEL [Suspect]
     Indication: BREAST CANCER
  11. HERCEPTIN [Suspect]
     Indication: BREAST CANCER
  12. METHOTREXATE [Suspect]
     Indication: BREAST CANCER

REACTIONS (4)
  - ASPARTATE AMINOTRANSFERASE INCREASED [None]
  - THROMBOCYTOPENIA [None]
  - LEUKOPENIA [None]
  - ALANINE AMINOTRANSFERASE INCREASED [None]
